FAERS Safety Report 7550694-7 (Version None)
Quarter: 2011Q2

REPORT INFORMATION
  Report Type: 
  Country: None (occurrence: None)
  Receive Date: 20110609
  Receipt Date: 20110524
  Transmission Date: 20111010
  Serious: Yes (Hospitalization, Other)
  Sender: FDA-Public Use
  Company Number: 2011MA006376

PATIENT
  Age: 56 Year
  Sex: Male

DRUGS (2)
  1. DIGOXIN [Concomitant]
  2. METOCLOPRAMIDE [Suspect]
     Indication: ULCER HAEMORRHAGE
     Dosage: 20 MG; Q6; IV
     Route: 042

REACTIONS (8)
  - NODAL RHYTHM [None]
  - ATRIAL FIBRILLATION [None]
  - ULCER HAEMORRHAGE [None]
  - BRADYARRHYTHMIA [None]
  - SINUS TACHYCARDIA [None]
  - BRADYCARDIA [None]
  - CARDIAC ARREST [None]
  - POSTOPERATIVE ILEUS [None]
